FAERS Safety Report 5980619-7 (Version None)
Quarter: 2008Q4

REPORT INFORMATION
  Report Type: 
  Country: None (occurrence: None)
  Receive Date: 20081205
  Receipt Date: 20080318
  Transmission Date: 20090506
  Serious: No
  Sender: FDA-Public Use
  Company Number: A0710095A

PATIENT
  Age: 51 Year
  Sex: Male

DRUGS (1)
  1. COMMIT [Suspect]
     Indication: TOBACCO USER

REACTIONS (5)
  - INTENTIONAL DRUG MISUSE [None]
  - NICOTINE DEPENDENCE [None]
  - PANIC REACTION [None]
  - PRODUCT QUALITY ISSUE [None]
  - WITHDRAWAL SYNDROME [None]
